FAERS Safety Report 9000618 (Version 1)
Quarter: 2012Q4

REPORT INFORMATION
  Report Type: Spontaneous
  Country: GB (occurrence: None)
  Receive Date: 20121221
  Receipt Date: 20121221
  Transmission Date: 20130627
  Serious: Yes (Disabling)
  Sender: FDA-Public Use
  Company Number: AUR-APL-2012-05333

PATIENT
  Age: 64 Year
  Sex: Female

DRUGS (3)
  1. SIMVASTATIN (SIMVASTATIN) [Suspect]
     Indication: CHOLESTEROL HIGH
     Route: 048
     Dates: start: 200603, end: 200603
  2. ATORVASTATIN (ATORVASTATIN) [Suspect]
     Indication: CHOLESTEROL HIGH
     Route: 048
     Dates: start: 200603, end: 201205
  3. FLUOXETINE (FLUOXETINE) [Concomitant]

REACTIONS (3)
  - Eczema [None]
  - Psoriasis [None]
  - Rash [None]
